FAERS Safety Report 22227982 (Version 1)
Quarter: 2023Q2

REPORT INFORMATION
  Report Type: Spontaneous
  Country: DK (occurrence: DK)
  Receive Date: 20230419
  Receipt Date: 20230419
  Transmission Date: 20230722
  Serious: Yes (Other)
  Sender: FDA-Public Use
  Company Number: DK-HALEON-DKCH2023HLN016667

PATIENT

DRUGS (2)
  1. SCOPOLAMINE [Suspect]
     Active Substance: SCOPOLAMINE
     Indication: Product used for unknown indication
     Dosage: UNK
  2. ALCOHOL [Suspect]
     Active Substance: ALCOHOL
     Indication: Product used for unknown indication
     Dosage: UNK

REACTIONS (9)
  - Anterograde amnesia [Unknown]
  - Toxicity to various agents [Unknown]
  - Discomfort [Unknown]
  - Abnormal behaviour [Unknown]
  - Nervousness [Unknown]
  - Mydriasis [Unknown]
  - Reading disorder [Unknown]
  - Accommodation disorder [Unknown]
  - Intentional product misuse [Unknown]
